FAERS Safety Report 8553882-6 (Version None)
Quarter: 2012Q3

REPORT INFORMATION
  Report Type: 
  Country: None (occurrence: None)
  Receive Date: 20120731
  Receipt Date: 20081221
  Transmission Date: 20120928
  Serious: Yes (Other)
  Sender: FDA-Public Use
  Company Number: CO-PFIZER INC-2012180830

PATIENT
  Sex: Female

DRUGS (8)
  1. NORFLOXACIN [Concomitant]
     Dosage: 10 MG, 2X/DAY
  2. HYDROCHLOROTHIAZIDE [Concomitant]
     Dosage: 30 MG, 1X/DAY
     Route: 048
  3. METOPROLOL TARTRATE [Concomitant]
     Dosage: 60 MG, 2X/DAY
     Route: 048
  4. LIPITOR [Suspect]
     Dosage: 30 MG, 1X/DAY
     Route: 048
  5. LOSARTAN [Concomitant]
     Dosage: 60 MG, 2X/DAY
     Route: 048
  6. ACETYLSALICYLIC ACID [Concomitant]
     Dosage: 30 MG, 1X/DAY
     Route: 048
  7. GLIBENCLAMIDE [Concomitant]
     Dosage: 90 MG, 3X/DAY
  8. METFORMIN [Concomitant]
     Dosage: 90 MG, 3X/DAY

REACTIONS (1)
  - DYSPNOEA EXERTIONAL [None]
